FAERS Safety Report 23308904 (Version 2)
Quarter: 2024Q1

REPORT INFORMATION
  Report Type: Spontaneous
  Country: US (occurrence: None)
  Receive Date: 20231218
  Receipt Date: 20240318
  Transmission Date: 20240410
  Serious: No
  Sender: FDA-Public Use
  Company Number: 2023A254967

PATIENT

DRUGS (1)
  1. TEZSPIRE [Suspect]
     Active Substance: TEZEPELUMAB-EKKO
     Indication: Asthma
     Route: 058

REACTIONS (1)
  - Nasopharyngitis [Unknown]

NARRATIVE: CASE EVENT DATE: 20231107
